FAERS Safety Report 9244409 (Version 1)
Quarter: 2013Q1

REPORT INFORMATION
  Report Type: Spontaneous
  Country: US (occurrence: None)
  Receive Date: 20121128
  Receipt Date: 20121128
  Transmission Date: 20140127
  Serious: No
  Sender: FDA-Public Use
  Company Number: 2012032602

PATIENT
  Age: 75 Year
  Sex: Male
  Weight: 101 kg

DRUGS (1)
  1. ALBUMINAR-25 [Suspect]
     Indication: HAEMODYNAMIC INSTABILITY
     Dosage: ??-OCT-2014; RAPID INFUSION; 50 GM)
     Dates: start: 20120424, end: 20120424

REACTIONS (1)
  - Hypotension [None]
